FAERS Safety Report 5502961-6 (Version None)
Quarter: 2007Q4

REPORT INFORMATION
  Report Type: 
  Country: None (occurrence: None)
  Receive Date: 20071031
  Receipt Date: 20071024
  Transmission Date: 20080405
  Serious: Yes (Other)
  Sender: FDA-Public Use
  Company Number: D0054911A

PATIENT
  Sex: Female

DRUGS (1)
  1. TYKERB [Suspect]
     Route: 048
     Dates: start: 20070101

REACTIONS (3)
  - BLISTER [None]
  - NAIL BED BLEEDING [None]
  - PARONYCHIA [None]
